FAERS Safety Report 8486907 (Version 3)
Quarter: 2012Q4

REPORT INFORMATION
  Report Type: 
  Country: SE (occurrence: SE)
  Receive Date: 20120402
  Receipt Date: 20121004
  Transmission Date: 20130627
  Serious: Yes (Death)
  Sender: FDA-Public Use
  Company Number: SE-MPIJNJ-2012-02140

PATIENT

DRUGS (2)
  1. VELCADE [Suspect]
     Indication: MYELOMA RECURRENCE
     Dosage: 1.3 mg/m2, Cyclic
     Route: 042
  2. DEXAMETHASONE [Suspect]
     Indication: MYELOMA RECURRENCE
     Dosage: 20 mg, Cyclic

REACTIONS (1)
  - Death [Fatal]
